FAERS Safety Report 5264956-X (Version None)
Quarter: 2007Q1

REPORT INFORMATION
  Report Type: 
  Country: None (occurrence: None)
  Receive Date: 20070314
  Receipt Date: 20070228
  Transmission Date: 20070707
  Serious: Yes (Life-Threatening, Hospitalization)
  Sender: FDA-Public Use
  Company Number: US-AMGEN-US201133

PATIENT
  Sex: Male
  Weight: 72.6 kg

DRUGS (14)
  1. ENBREL [Suspect]
     Indication: ANKYLOSING SPONDYLITIS
     Route: 058
     Dates: start: 20050301, end: 20061001
  2. PROVIGIL [Concomitant]
     Route: 048
  3. FATTY ACID [Concomitant]
  4. ACYCLOVIR [Concomitant]
     Route: 048
     Dates: start: 20061101
  5. LEXAPRO [Concomitant]
     Route: 048
     Dates: start: 20061101
  6. COMPAZINE [Concomitant]
     Dates: start: 20061101
  7. SEROQUEL [Concomitant]
     Route: 048
     Dates: start: 20061101
  8. BACTRIM [Concomitant]
     Dates: start: 20061101
  9. DIFLUCAN [Concomitant]
     Route: 048
     Dates: start: 20061101
  10. PREDNISONE [Concomitant]
     Route: 048
     Dates: start: 20061101
  11. LORTAB [Concomitant]
  12. BENZODIAZEPINE [Concomitant]
  13. MIRALAX [Concomitant]
  14. MSIR [Concomitant]

REACTIONS (15)
  - ACUTE MYELOID LEUKAEMIA [None]
  - BACTERAEMIA [None]
  - DECREASED APPETITE [None]
  - DELIRIUM [None]
  - DEPRESSION [None]
  - ENTEROCOCCAL INFECTION [None]
  - FEBRILE NEUTROPENIA [None]
  - HALLUCINATION [None]
  - LYMPHOBLAST COUNT INCREASED [None]
  - LYMPHOMA [None]
  - MUCOSAL INFLAMMATION [None]
  - PANCYTOPENIA [None]
  - PHARYNGOLARYNGEAL PAIN [None]
  - STAPHYLOCOCCAL INFECTION [None]
  - WEIGHT DECREASED [None]
